FAERS Safety Report 6561589-X (Version None)
Quarter: 2010Q1

REPORT INFORMATION
  Report Type: 
  Country: None (occurrence: None)
  Receive Date: 20100130
  Receipt Date: 20091020
  Transmission Date: 20100710
  Serious: No
  Sender: FDA-Public Use
  Company Number: US-ABBOTT-09P-163-0604649-00

PATIENT
  Sex: Male
  Weight: 88.53 kg

DRUGS (13)
  1. HUMIRA [Suspect]
     Indication: PSORIASIS
     Route: 058
     Dates: start: 20080101
  2. METFORMIN [Concomitant]
     Indication: DIABETES MELLITUS
     Dosage: UNKNOWN
     Route: 048
  3. GLIPIZIDE [Concomitant]
     Indication: DIABETES MELLITUS
     Dosage: UNKNOWN
     Route: 048
  4. LISINOPRIL [Concomitant]
     Indication: DRUG USE FOR UNKNOWN INDICATION
     Dosage: UNKNOWN
     Route: 048
  5. LEVOTHYROXINE SODIUM [Concomitant]
     Indication: THYROID DISORDER
     Dosage: UNKNOWN
     Route: 048
  6. LEVOTHYROXINE SODIUM [Concomitant]
     Indication: RADIOTHERAPY
  7. DIGOXIN [Concomitant]
     Indication: ATRIAL FIBRILLATION
     Dosage: UNKNOWN
     Route: 048
  8. ATENOLOL [Concomitant]
     Indication: ATRIAL FIBRILLATION
     Dosage: UNKNOWN
     Route: 048
  9. VITAMIN C [Concomitant]
     Indication: VITAMIN SUPPLEMENTATION
     Dosage: UNKNOWN
     Route: 048
  10. VITAMIN E [Concomitant]
     Indication: VITAMIN SUPPLEMENTATION
     Dosage: UNKNOWN
     Route: 048
  11. VITAMIN D [Concomitant]
     Indication: VITAMIN SUPPLEMENTATION
     Dosage: UNKNOWN
     Route: 048
  12. PROSTATE VITAMIN [Concomitant]
     Indication: PROSTATIC DISORDER
     Dosage: UNKNOWN
     Route: 048
  13. ECHINACEA [Concomitant]
     Indication: PHYTOTHERAPY
     Dosage: UNKNOWN
     Route: 048

REACTIONS (5)
  - ARTHRALGIA [None]
  - ARTHROPATHY [None]
  - GAIT DISTURBANCE [None]
  - MOBILITY DECREASED [None]
  - OEDEMA PERIPHERAL [None]
